FAERS Safety Report 6665896-1 (Version None)
Quarter: 2010Q1

REPORT INFORMATION
  Report Type: 
  Country: None (occurrence: None)
  Receive Date: 20100326
  Receipt Date: 20091015
  Transmission Date: 20100710
  Serious: Yes (Other)
  Sender: FDA-Public Use
  Company Number: 2009SU0229

PATIENT
  Age: 83 Year
  Sex: Female
  Weight: 67.1324 kg

DRUGS (10)
  1. SULAR [Suspect]
     Indication: HYPERTENSION
     Dosage: 17 MG, DAILY8.5 MG, TWICE DAILY
     Dates: start: 20090701, end: 20090901
  2. SULAR [Suspect]
     Indication: HYPERTENSION
     Dates: start: 20091014
  3. SULAR [Suspect]
     Indication: HYPERTENSION
     Dosage: 8.5 MG, DAILY, ORAL
     Route: 048
     Dates: start: 20070101, end: 20090701
  4. MICARDIS [Concomitant]
  5. TOPROL-XL [Concomitant]
  6. HYDROCHLOROTHIAZIDE [Concomitant]
  7. SYNTHROID [Concomitant]
  8. . [Concomitant]
  9. . [Concomitant]
  10. . [Concomitant]

REACTIONS (5)
  - DRUG INEFFECTIVE [None]
  - FLUSHING [None]
  - HEADACHE [None]
  - MALAISE [None]
  - NAUSEA [None]
